FAERS Safety Report 6077733-7 (Version None)
Quarter: 2009Q1

REPORT INFORMATION
  Report Type: 
  Country: None (occurrence: None)
  Receive Date: 20090213
  Receipt Date: 20090204
  Transmission Date: 20090719
  Serious: Yes (Other)
  Sender: FDA-Public Use
  Company Number: PHEH2007US14501

PATIENT
  Sex: Male
  Weight: 90.703 kg

DRUGS (10)
  1. ZOMETA [Suspect]
     Dosage: 4 MG, UNK
     Route: 042
     Dates: end: 20060401
  2. OXYCONTIN [Concomitant]
  3. PERCOCET [Concomitant]
  4. INTERFERON [Concomitant]
  5. RADIATION THERAPY [Concomitant]
     Dosage: UNK
     Dates: start: 20080103, end: 20080211
  6. ASPIRIN [Concomitant]
  7. AMIODARONE [Concomitant]
  8. FAMOTIDINE [Concomitant]
  9. METOCLOPRAMIDE [Concomitant]
  10. SORAFENIB [Concomitant]
     Dosage: UNK
     Dates: start: 20060201

REACTIONS (24)
  - ANHEDONIA [None]
  - ANXIETY [None]
  - BONE DISORDER [None]
  - DENTAL CARE [None]
  - DENTAL CARIES [None]
  - DIARRHOEA [None]
  - FATIGUE [None]
  - GINGIVAL PAIN [None]
  - GINGIVAL ULCERATION [None]
  - INJURY [None]
  - INTERVERTEBRAL DISC DISORDER [None]
  - METASTATIC RENAL CELL CARCINOMA [None]
  - MOUTH ULCERATION [None]
  - ORAL DISORDER [None]
  - ORAL PAIN [None]
  - OSTEONECROSIS [None]
  - OSTEOPENIA [None]
  - PAIN [None]
  - PALMAR-PLANTAR ERYTHRODYSAESTHESIA SYNDROME [None]
  - SURGERY [None]
  - TOOTH EXTRACTION [None]
  - TOOTH FRACTURE [None]
  - TOOTH REPAIR [None]
  - WEIGHT DECREASED [None]
